FAERS Safety Report 5450637-6 (Version None)
Quarter: 2007Q3

REPORT INFORMATION
  Report Type: 
  Country: None (occurrence: None)
  Receive Date: 20070912
  Receipt Date: 20070903
  Transmission Date: 20080115
  Serious: Yes (Other)
  Sender: FDA-Public Use
  Company Number: ES-ABBOTT-07P-144-0415863-00

PATIENT
  Age: 70 Year
  Sex: Male

DRUGS (6)
  1. KALETRA [Suspect]
     Indication: HIV INFECTION
     Dates: end: 20070430
  2. NORVIR [Suspect]
     Indication: HIV INFECTION
     Dates: start: 20070430
  3. NORVIR [Suspect]
  4. INDINAVIR [Suspect]
     Indication: HIV INFECTION
     Dates: end: 20070430
  5. FOSAMPRENAVIR [Concomitant]
     Indication: HIV INFECTION
     Dates: start: 20070430
  6. ABACAVIR SULFATE W/LAMIVUDINE [Concomitant]
     Indication: HIV INFECTION

REACTIONS (2)
  - PROSTATITIS [None]
  - RENAL IMPAIRMENT [None]
